FAERS Safety Report 7436597-7 (Version None)
Quarter: 2011Q2

REPORT INFORMATION
  Report Type: 
  Country: None (occurrence: None)
  Receive Date: 20110426
  Receipt Date: 20110414
  Transmission Date: 20111010
  Serious: Yes (Hospitalization)
  Sender: FDA-Public Use
  Company Number: JP-ELI_LILLY_AND_COMPANY-JP201103003441

PATIENT
  Sex: Female
  Weight: 58 kg

DRUGS (4)
  1. MUCOSTA [Concomitant]
     Dosage: 100 MG, TID
     Route: 048
  2. PROHEPARUM [Concomitant]
     Dosage: UNK, TID
     Route: 048
  3. EVISTA [Suspect]
     Indication: OSTEOPOROSIS POSTMENOPAUSAL
     Dosage: 60 MG, DAILY (1/D)
     Route: 048
     Dates: start: 20081001, end: 20101201
  4. URSO 250 [Concomitant]
     Dosage: 50 MG, TID
     Route: 048

REACTIONS (1)
  - SUPERIOR SAGITTAL SINUS THROMBOSIS [None]
